FAERS Safety Report 7422916-4 (Version None)
Quarter: 2011Q2

REPORT INFORMATION
  Report Type: 
  Country: None (occurrence: None)
  Receive Date: 20110419
  Receipt Date: 20110322
  Transmission Date: 20111010
  Serious: No
  Sender: FDA-Public Use
  Company Number: TR-SANOFI-AVENTIS-2011SA017690

PATIENT
  Age: 23 Year
  Sex: Female

DRUGS (3)
  1. FOLIC ACID [Concomitant]
     Route: 065
  2. METHOTREXATE [Suspect]
     Indication: STILL'S DISEASE ADULT ONSET
     Route: 065
     Dates: start: 20080201, end: 20090101
  3. LEFLUNOMIDE [Suspect]
     Indication: STILL'S DISEASE ADULT ONSET
     Route: 065
     Dates: start: 20081101, end: 20090101

REACTIONS (1)
  - DRUG EXPOSURE DURING PREGNANCY [None]
